FAERS Safety Report 18733323 (Version 1)
Quarter: 2021Q1

REPORT INFORMATION
  Report Type: Spontaneous
  Country: US (occurrence: US)
  Receive Date: 20210113
  Receipt Date: 20210113
  Transmission Date: 20210419
  Serious: No
  Sender: FDA-Public Use
  Company Number: US-JNJFOC-20201252546

PATIENT
  Age: 53 Year
  Sex: Female

DRUGS (19)
  1. PARACETAMOL [Suspect]
     Active Substance: ACETAMINOPHEN
     Indication: PRODUCT USED FOR UNKNOWN INDICATION
     Dosage: UNK
     Route: 065
  2. LOSARTAN. [Suspect]
     Active Substance: LOSARTAN
     Dosage: UNK
  3. ALBUTEROL [SALBUTAMOL] [Suspect]
     Active Substance: ALBUTEROL
     Dosage: UNK
  4. DULOXETINE. [Suspect]
     Active Substance: DULOXETINE
     Dosage: UNK
  5. CHOLESTYRAMINE. [Suspect]
     Active Substance: CHOLESTYRAMINE
     Dosage: UNK
  6. DIET FORMULATIONS FOR TREATMENT OF OBESITY [Suspect]
     Active Substance: UNSPECIFIED INGREDIENT
     Dosage: UNK
  7. FLUCONAZOLE. [Suspect]
     Active Substance: FLUCONAZOLE
     Indication: PRODUCT USED FOR UNKNOWN INDICATION
     Dosage: 150 MG, AS NEEDED (TAKE 1 TABLET BY MOUTH, REPEAT IN 3 DAYS IF NEEDED)
     Route: 048
  8. METRONIDAZOLE. [Suspect]
     Active Substance: METRONIDAZOLE
     Dosage: UNK
  9. CIPROFLOXACIN. [Suspect]
     Active Substance: CIPROFLOXACIN
     Dosage: UNK
  10. ASPARTAME [Suspect]
     Active Substance: ASPARTAME
     Dosage: UNK
  11. LACTOSE [Suspect]
     Active Substance: LACTOSE
     Dosage: UNK
  12. CITRIC ACID [Suspect]
     Active Substance: CITRIC ACID MONOHYDRATE
     Dosage: UNK
  13. ELETRIPTAN [ELETRIPTAN HYDROBROMIDE] [Suspect]
     Active Substance: ELETRIPTAN HYDROBROMIDE
     Indication: MIGRAINE
     Dosage: 40 MG, AS NEEDED (1 DOSE MAY REPEAT IN 2 HRS IF NEEDED. DO NOT EXCEED 80 MG IN 24 HRS)
     Route: 048
  14. OMEPRAZOLE. [Suspect]
     Active Substance: OMEPRAZOLE
     Dosage: UNK
  15. POTASSIUM [Suspect]
     Active Substance: POTASSIUM
     Dosage: UNK
  16. LISINOPRIL. [Suspect]
     Active Substance: LISINOPRIL
     Dosage: UNK
  17. CLARITHROMYCIN. [Suspect]
     Active Substance: CLARITHROMYCIN
     Dosage: UNK
  18. DIPHENHYDRAMINE HYDROCHLORIDE. [Suspect]
     Active Substance: DIPHENHYDRAMINE HYDROCHLORIDE
     Dosage: UNK
  19. CODEINE [Suspect]
     Active Substance: CODEINE
     Dosage: UNK

REACTIONS (1)
  - Drug hypersensitivity [Unknown]
